FAERS Safety Report 8215241-5 (Version None)
Quarter: 2012Q1

REPORT INFORMATION
  Report Type: 
  Country: None (occurrence: None)
  Receive Date: 20120314
  Receipt Date: 20120303
  Transmission Date: 20120608
  Serious: Yes (Hospitalization)
  Sender: FDA-Public Use
  Company Number: 2012AP000633

PATIENT
  Age: 17 Year
  Sex: Male

DRUGS (5)
  1. EPINEPHRINE [Suspect]
     Indication: PRODUCT USED FOR UNKNOWN INDICATION
  2. MIDAZOLAM [Suspect]
     Indication: PRODUCT USED FOR UNKNOWN INDICATION
  3. FENTANYL [Suspect]
     Indication: PRODUCT USED FOR UNKNOWN INDICATION
  4. LABETALOL HCL [Suspect]
     Indication: PRODUCT USED FOR UNKNOWN INDICATION
  5. PROPOFOL [Suspect]
     Indication: PRODUCT USED FOR UNKNOWN INDICATION

REACTIONS (7)
  - SINUS TACHYCARDIA [None]
  - BLINDNESS [None]
  - EPILEPSY [None]
  - MENTAL STATUS CHANGES [None]
  - HYPERTENSION [None]
  - ACUTE RESPIRATORY DISTRESS SYNDROME [None]
  - POSTERIOR REVERSIBLE ENCEPHALOPATHY SYNDROME [None]
